FAERS Safety Report 4463996-8 (Version None)
Quarter: 2004Q4

REPORT INFORMATION
  Report Type: 
  Country: None (occurrence: None)
  Receive Date: 20041001
  Receipt Date: 20040920
  Transmission Date: 20050328
  Serious: Yes (Death, Other)
  Sender: FDA-Public Use
  Company Number: US-BRISTOL-MYERS SQUIBB COMPANY-12709267

PATIENT
  Age: 53 Year
  Sex: Male

DRUGS (11)
  1. WARFARIN SODIUM [Interacting]
     Dosage: 5 MG QD EXCEPT 2.5 MG 1 DAY/WK
  2. AZITHROMYCIN [Interacting]
     Dosage: DAY 1: 500 MG, DAYS 2-5: 250 MG PER DAY
     Route: 048
  3. ASPIRIN [Suspect]
  4. PREDNISONE [Suspect]
  5. ACETAMINOPHEN W/ PROPOXYPHENE HCL [Concomitant]
  6. DIGOXIN [Concomitant]
  7. PHENYTOIN [Concomitant]
  8. FAMOTIDINE [Concomitant]
  9. HYDROXYCHLOROQUINE SULFATE [Concomitant]
  10. POTASSIUM CHLORIDE [Concomitant]
  11. FUROSEMIDE [Concomitant]

REACTIONS (5)
  - COUGH [None]
  - DRUG INTERACTION [None]
  - HAEMOPTYSIS [None]
  - INTERNATIONAL NORMALISED RATIO INCREASED [None]
  - MULTI-ORGAN FAILURE [None]
